FAERS Safety Report 8031021-8 (Version None)
Quarter: 2012Q1

REPORT INFORMATION
  Report Type: 
  Country: None (occurrence: None)
  Receive Date: 20120109
  Receipt Date: 20120105
  Transmission Date: 20120608
  Serious: Yes (Other)
  Sender: FDA-Public Use
  Company Number: PHEH2011US009149

PATIENT
  Sex: Female
  Weight: 49.887 kg

DRUGS (6)
  1. VIVELLE-DOT [Suspect]
     Dosage: 0.037 MG, QW2
     Route: 062
  2. PROVERA [Concomitant]
  3. ESTRADERM [Suspect]
     Indication: VULVOVAGINAL DRYNESS
     Route: 063
  4. CALCIUM ACETATE [Concomitant]
  5. VITAMINS WITH MINERALS [Concomitant]
  6. MEDROXYPROGESTERONE ACETATE [Suspect]

REACTIONS (5)
  - THERAPEUTIC RESPONSE UNEXPECTED [None]
  - FIBROCYSTIC BREAST DISEASE [None]
  - BREAST MASS [None]
  - DRUG INEFFECTIVE [None]
  - VEIN DISORDER [None]
